FAERS Safety Report 7865336-0 (Version None)
Quarter: 2011Q4

REPORT INFORMATION
  Report Type: 
  Country: None (occurrence: None)
  Receive Date: 20111028
  Receipt Date: 20101129
  Transmission Date: 20120403
  Serious: No
  Sender: FDA-Public Use
  Company Number: US-GLAXOSMITHKLINE-A0896711A

PATIENT
  Age: 77 Year
  Sex: Female

DRUGS (8)
  1. LEVOTHYROXINE SODIUM [Concomitant]
  2. VITAMIN D [Concomitant]
  3. FISH OIL [Concomitant]
  4. AVALIDE [Concomitant]
  5. CALCIUM CARBONATE [Concomitant]
  6. ADVAIR DISKUS 100/50 [Suspect]
     Indication: WHEEZING
     Dosage: 1PUFF TWICE PER DAY
     Route: 055
     Dates: start: 20101124, end: 20101128
  7. BIOTENE [Concomitant]
  8. GLUCOSAMINE [Concomitant]

REACTIONS (3)
  - ADVERSE DRUG REACTION [None]
  - MIGRAINE [None]
  - BLOOD PRESSURE INCREASED [None]
